FAERS Safety Report 19021024 (Version 1)
Quarter: 2021Q1

REPORT INFORMATION
  Report Type: Spontaneous
  Country: US (occurrence: US)
  Receive Date: 20210317
  Receipt Date: 20210317
  Transmission Date: 20210420
  Serious: Yes (Hospitalization, Other)
  Sender: FDA-Public Use
  Company Number: US-PFIZER INC-2021269424

PATIENT
  Age: 64 Year
  Sex: Male
  Weight: 89.34 kg

DRUGS (13)
  1. SCOPOLAMINE [HYOSCINE] [Concomitant]
     Active Substance: SCOPOLAMINE
     Dosage: UNK, CYCLIC (1 PATCH/3DAY)
  2. CORTEF [Concomitant]
     Active Substance: HYDROCORTISONE
     Indication: ADRENAL DISORDER
     Dosage: UNK
     Route: 048
  3. DIFLUCAN [Suspect]
     Active Substance: FLUCONAZOLE
     Dosage: 3 DF (3 PILLS)
  4. LIPITOR [Concomitant]
     Active Substance: ATORVASTATIN CALCIUM
     Dosage: UNK
     Route: 048
  5. DIFLUCAN [Suspect]
     Active Substance: FLUCONAZOLE
     Dosage: 2 DF (2PILLS)
  6. ZINC. [Concomitant]
     Active Substance: ZINC
     Dosage: UNK MG
  7. REVLIMID [Suspect]
     Active Substance: LENALIDOMIDE
     Indication: PLASMA CELL MYELOMA
     Dosage: 25 MG, DAILY
     Route: 048
     Dates: start: 201609
  8. REVLIMID [Suspect]
     Active Substance: LENALIDOMIDE
     Dosage: 10 MG, DAILY (1 IN 1 D, PO (ORAL))
     Route: 048
     Dates: start: 201703
  9. REVLIMID [Suspect]
     Active Substance: LENALIDOMIDE
     Dosage: 10 MG, DAILY (1 IN 1 D, PO (ORAL))
     Route: 048
     Dates: start: 201802
  10. LOMOTIL [LOPERAMIDE HYDROCHLORIDE] [Concomitant]
     Active Substance: LOPERAMIDE HYDROCHLORIDE
     Dosage: UNK (2.5?0.25 MG)
     Route: 048
  11. HYDROCODONE/PARACETAMOL [Concomitant]
     Active Substance: ACETAMINOPHEN\HYDROCODONE BITARTRATE
     Dosage: UNK
  12. ZOFRAN [Suspect]
     Active Substance: ONDANSETRON HYDROCHLORIDE
     Dosage: UNK
     Route: 048
  13. POTASSIUM [Concomitant]
     Active Substance: POTASSIUM
     Dosage: UNK (599 (95) MG)
     Route: 048

REACTIONS (1)
  - Heart rate decreased [Unknown]
